FAERS Safety Report 7076590-X (Version None)
Quarter: 2010Q4

REPORT INFORMATION
  Report Type: 
  Country: None (occurrence: None)
  Receive Date: 20101101
  Receipt Date: 20101026
  Transmission Date: 20110411
  Serious: Yes (Other)
  Sender: FDA-Public Use
  Company Number: US-PFIZER INC-2010070567

PATIENT
  Sex: Male
  Weight: 111.11 kg

DRUGS (7)
  1. TOVIAZ [Suspect]
     Indication: BLADDER DISORDER
     Dosage: 8 MG, 1X/DAY
     Route: 048
     Dates: start: 20091201
  2. TOVIAZ [Suspect]
     Indication: PROSTATECTOMY
  3. TOVIAZ [Suspect]
     Indication: HYPERTONIC BLADDER
  4. HUMIRA [Concomitant]
     Indication: ARTHRITIS
     Dosage: UNK
  5. HUMIRA [Concomitant]
     Indication: INFECTION
  6. HUMIRA [Concomitant]
     Indication: PSORIASIS
  7. ALLOPURINOL [Concomitant]
     Indication: BLOOD URIC ACID ABNORMAL
     Dosage: UNK

REACTIONS (4)
  - DRUG INEFFECTIVE [None]
  - DRY MOUTH [None]
  - INCORRECT DOSE ADMINISTERED [None]
  - PROSTATIC SPECIFIC ANTIGEN ABNORMAL [None]
